FAERS Safety Report 20317719 (Version 1)
Quarter: 2022Q1

REPORT INFORMATION
  Report Type: Spontaneous
  Country: IN (occurrence: IN)
  Receive Date: 20220110
  Receipt Date: 20220110
  Transmission Date: 20220424
  Serious: Yes (Life-Threatening, Hospitalization, Other)
  Sender: FDA-Public Use
  Company Number: IN-MLMSERVICE-20211228-3289872-1

PATIENT
  Age: 52 Year
  Sex: Male

DRUGS (1)
  1. CISPLATIN [Suspect]
     Active Substance: CISPLATIN
     Indication: Squamous cell carcinoma of head and neck

REACTIONS (4)
  - Mouth haemorrhage [Recovered/Resolved]
  - Carotid artery perforation [Recovered/Resolved]
  - Vascular pseudoaneurysm [Recovered/Resolved]
  - Oral infection [Recovered/Resolved]
